FAERS Safety Report 7272354-2 (Version None)
Quarter: 2011Q1

REPORT INFORMATION
  Report Type: 
  Country: None (occurrence: None)
  Receive Date: 20110203
  Receipt Date: 20110128
  Transmission Date: 20110831
  Serious: Yes (Death, Hospitalization, Other)
  Sender: FDA-Public Use
  Company Number: PHHY2010JP88358

PATIENT
  Sex: Male

DRUGS (2)
  1. TAXOTERE [Concomitant]
     Dosage: UNK
     Dates: start: 20081201
  2. ZOMETA [Suspect]
     Indication: PROSTATE CANCER
     Dosage: UNK
     Route: 048
     Dates: start: 20070528

REACTIONS (11)
  - GENERAL PHYSICAL HEALTH DETERIORATION [None]
  - BONE DISORDER [None]
  - TOOTH LOSS [None]
  - HAEMATURIA [None]
  - SALIVA DISCOLOURATION [None]
  - NEOPLASM MALIGNANT [None]
  - X-RAY ABNORMAL [None]
  - BLADDER TAMPONADE [None]
  - URINARY RETENTION [None]
  - OSTEONECROSIS OF JAW [None]
  - DENTAL DISCOMFORT [None]
